FAERS Safety Report 14569494 (Version 1)
Quarter: 2018Q1

REPORT INFORMATION
  Report Type: Spontaneous
  Country: CO (occurrence: CO)
  Receive Date: 20180224
  Receipt Date: 20180224
  Transmission Date: 20180509
  Serious: Yes (Other)
  Sender: FDA-Public Use
  Company Number: CO-009507513-1801COL013664

PATIENT
  Sex: Female

DRUGS (1)
  1. NUVARING [Suspect]
     Active Substance: ETHINYL ESTRADIOL\ETONOGESTREL
     Dosage: VAGINAL RING 3 WEEKS IN WITH A WEEK OFF
     Route: 067

REACTIONS (2)
  - Device breakage [Unknown]
  - Vaginal laceration [Recovered/Resolved]

NARRATIVE: CASE EVENT DATE: 2013
